FAERS Safety Report 4546462-0 (Version None)
Quarter: 2005Q1

REPORT INFORMATION
  Report Type: 
  Country: None (occurrence: None)
  Receive Date: 20050103
  Receipt Date: 20041213
  Transmission Date: 20050727
  Serious: Yes (Other)
  Sender: FDA-Public Use
  Company Number: GBS040915591

PATIENT
  Age: 61 Year
  Sex: Female

DRUGS (8)
  1. FORTEO [Suspect]
     Indication: OSTEOPOROSIS
     Dates: start: 20040601, end: 20040801
  2. CO-PRAXAMOL [Concomitant]
  3. ATENOLOL [Concomitant]
  4. METHOTREXATE [Concomitant]
  5. PREDNISOLONE [Concomitant]
  6. FOLIC ACID [Concomitant]
  7. RANITIDINE [Concomitant]
  8. ADCAL-D3 [Concomitant]

REACTIONS (4)
  - CHEST PAIN [None]
  - CONDITION AGGRAVATED [None]
  - PALPITATIONS [None]
  - THERAPY NON-RESPONDER [None]
